FAERS Safety Report 5691763-6 (Version None)
Quarter: 2008Q2

REPORT INFORMATION
  Report Type: 
  Country: None (occurrence: None)
  Receive Date: 20080401
  Receipt Date: 20080401
  Transmission Date: 20081010
  Serious: Yes (Other)
  Sender: FDA-Public Use
  Company Number: None

PATIENT
  Age: 4 Year
  Sex: Male
  Weight: 21.7727 kg

DRUGS (2)
  1. ZYRTEC [Suspect]
     Indication: MULTIPLE ALLERGIES
     Dosage: 1 TSP AT NIGHT
     Dates: start: 20080214, end: 20080327
  2. SINGULAIR [Suspect]
     Indication: MULTIPLE ALLERGIES
     Dosage: 1 TABLET -4 MG- AT NIGHT
     Dates: start: 20080214, end: 20080327

REACTIONS (8)
  - ABNORMAL BEHAVIOUR [None]
  - ANGER [None]
  - CRYING [None]
  - HUMAN BITE [None]
  - INSOMNIA [None]
  - MOOD ALTERED [None]
  - PERSONALITY CHANGE [None]
  - SCREAMING [None]
